FAERS Safety Report 24873685 (Version 2)
Quarter: 2025Q1

REPORT INFORMATION
  Report Type: Report from Study
  Country: US (occurrence: US)
  Receive Date: 20250122
  Receipt Date: 20250310
  Transmission Date: 20250409
  Serious: No
  Sender: ACADIA PHARMACEUTICALS
  Company Number: US-ACADIA PHARMACEUTICALS INC.-ACA-2025-TRF-000312

PATIENT
  Sex: Female

DRUGS (26)
  1. DAYBUE [Suspect]
     Active Substance: TROFINETIDE
     Indication: Rett syndrome
     Dosage: 15 MILLILITER, BID
     Dates: start: 20231016
  2. ALBUTEROL SULFATE [Concomitant]
     Active Substance: ALBUTEROL SULFATE
     Indication: Dyspnoea
  3. ALBUTEROL SULFATE [Concomitant]
     Active Substance: ALBUTEROL SULFATE
     Indication: Wheezing
  4. ALBUTEROL [Concomitant]
     Active Substance: ALBUTEROL
     Indication: Cough
  5. ALBUTEROL [Concomitant]
     Active Substance: ALBUTEROL
     Indication: Wheezing
  6. SODIUM CHLORIDE PHYSIOLOGICAL [Concomitant]
     Indication: Cough
  7. FIBER THERAPY (CALCIUM POLYCARBOPHIL) [Concomitant]
     Active Substance: CALCIUM POLYCARBOPHIL
  8. ZANAFLEX [Concomitant]
     Active Substance: TIZANIDINE HYDROCHLORIDE
  9. KONVOMEP [Concomitant]
     Active Substance: OMEPRAZOLE\SODIUM BICARBONATE
     Dosage: 10 MILLILITER, QD
  10. POLYETHYLENE GLYCOL\PROPYLENE GLYCOL [Concomitant]
     Active Substance: POLYETHYLENE GLYCOL\PROPYLENE GLYCOL
  11. IBUPROFEN [Concomitant]
     Active Substance: IBUPROFEN
     Indication: Pyrexia
  12. IBUPROFEN [Concomitant]
     Active Substance: IBUPROFEN
     Indication: Pain
  13. TYLENOL [Concomitant]
     Active Substance: ACETAMINOPHEN
     Indication: Pain
  14. REGLAN [Concomitant]
     Active Substance: METOCLOPRAMIDE HYDROCHLORIDE
  15. D-VI-SOL [Concomitant]
     Dosage: 5 MILLILITER, QD
  16. MUCOMYST [Concomitant]
     Active Substance: ACETYLCYSTEINE
     Indication: Secretion discharge
     Dosage: 2.5 MILLILITER, BID AS NEEDED
     Route: 048
  17. NEURONTIN [Concomitant]
     Active Substance: GABAPENTIN
     Dosage: 4 MILLILITER, QD AT BEDTIME
  18. VALPROATE SODIUM [Concomitant]
     Active Substance: VALPROATE SODIUM
     Dosage: 2.5 MILLILITER, TID IN THE MORNING, IN THE EVENIN, AT BEDTIME
     Route: 048
  19. RISPERDAL [Concomitant]
     Active Substance: RISPERIDONE
     Dosage: 4 MILLILITER, BID
  20. MYSOLINE [Concomitant]
     Active Substance: PRIMIDONE
  21. VIMPAT [Concomitant]
     Active Substance: LACOSAMIDE
     Dosage: 5 MILLILITER, BID
  22. VALTOCO [Concomitant]
     Active Substance: DIAZEPAM
     Indication: Seizure
     Dosage: 10 MILLIGRAM, QD IF NEEDED
     Route: 045
  23. KLONOPIN [Concomitant]
     Active Substance: CLONAZEPAM
  24. REMERON [Concomitant]
     Active Substance: MIRTAZAPINE
     Route: 048
  25. CUVPOSA [GLYCOPYRRONIUM] [Concomitant]
     Indication: Secretion discharge
     Dosage: 4 MILLILITER, BID AS NEEDED ORAL LIQUID
     Route: 048
  26. KEFLEX [Concomitant]
     Active Substance: CEPHALEXIN

REACTIONS (1)
  - Diarrhoea [Not Recovered/Not Resolved]
